FAERS Safety Report 10485344 (Version 1)
Quarter: 2014Q3

REPORT INFORMATION
  Report Type: Report from Study
  Country: US (occurrence: US)
  Receive Date: 20140930
  Receipt Date: 20140930
  Transmission Date: 20150326
  Serious: Yes (Other)
  Sender: FDA-Public Use
  Company Number: US-ALEXION PHARMACEUTICALS INC-A201203150

PATIENT
  Sex: Female

DRUGS (1)
  1. SOLIRIS [Suspect]
     Active Substance: ECULIZUMAB
     Indication: PAROXYSMAL NOCTURNAL HAEMOGLOBINURIA
     Dosage: UNK
     Route: 042

REACTIONS (14)
  - Functional gastrointestinal disorder [Unknown]
  - Abdominal pain [Unknown]
  - Lyme disease [Unknown]
  - Quality of life decreased [Unknown]
  - Headache [Unknown]
  - Fatigue [Unknown]
  - Back pain [Unknown]
  - Dysphagia [Unknown]
  - Migraine [Unknown]
  - Hysterectomy [Unknown]
  - Haemoglobinuria [Unknown]
  - Impaired gastric emptying [Unknown]
  - Dyspnoea [Unknown]
  - Fibromyalgia [Unknown]
